FAERS Safety Report 6279262-4 (Version None)
Quarter: 2009Q3

REPORT INFORMATION
  Report Type: 
  Country: None (occurrence: None)
  Receive Date: 20090721
  Receipt Date: 20090708
  Transmission Date: 20100115
  Serious: Yes (Death, Hospitalization)
  Sender: FDA-Public Use
  Company Number: 230314M09USA

PATIENT
  Age: 56 Year
  Sex: Female

DRUGS (9)
  1. REBIF [Suspect]
     Indication: MULTIPLE SCLEROSIS
     Dosage: 44 MCG, 3 IN 1 WEEKS, SUBCUTANEOUS
     Route: 058
     Dates: start: 20070101, end: 20090601
  2. ZOLOFT [Concomitant]
  3. ASPIRIN [Concomitant]
  4. SIMVASTATIN [Concomitant]
  5. SYNTHROID [Concomitant]
  6. LOPRESSOR [Concomitant]
  7. ISORDIL 9ISOSORBIDE DINITRATE) [Concomitant]
  8. PLAVIX [Concomitant]
  9. COMBIVENT [Concomitant]

REACTIONS (1)
  - PNEUMONIA [None]
